FAERS Safety Report 9878495 (Version 1)
Quarter: 2014Q1

REPORT INFORMATION
  Report Type: Spontaneous
  Country: None (occurrence: US)
  Receive Date: 20140206
  Receipt Date: 20140206
  Transmission Date: 20141002
  Serious: No
  Sender: FDA-Public Use
  Company Number: US-ALLERGAN-1311386US

PATIENT
  Sex: Female

DRUGS (1)
  1. BOTOX [Suspect]
     Indication: BLEPHAROSPASM
     Dosage: UNK, SINGLE

REACTIONS (4)
  - Blepharospasm [Not Recovered/Not Resolved]
  - Discomfort [Not Recovered/Not Resolved]
  - Discomfort [Not Recovered/Not Resolved]
  - Hyperhidrosis [Not Recovered/Not Resolved]
